FAERS Safety Report 18108628 (Version 1)
Quarter: 2020Q3

REPORT INFORMATION
  Report Type: Spontaneous
  Country: US (occurrence: US)
  Receive Date: 20200804
  Receipt Date: 20200804
  Transmission Date: 20201103
  Serious: Yes (Hospitalization)
  Sender: FDA-Public Use
  Company Number: US-HIKMA PHARMACEUTICALS USA INC.-US-H14001-20-03582

PATIENT
  Age: 42 Year
  Sex: Female

DRUGS (2)
  1. LIDOCAINE. [Suspect]
     Active Substance: LIDOCAINE
     Indication: PAIN
     Route: 065
  2. BETHASONE [Suspect]
     Active Substance: BETAMETHASONE VALERATE
     Indication: PAIN
     Route: 065

REACTIONS (2)
  - Muscular weakness [Unknown]
  - Familial periodic paralysis [Unknown]
